FAERS Safety Report 25251123 (Version 2)
Quarter: 2025Q2

REPORT INFORMATION
  Report Type: Spontaneous
  Country: US (occurrence: US)
  Receive Date: 20250429
  Receipt Date: 20250513
  Transmission Date: 20250716
  Serious: No
  Sender: CALLIDITAS THERAPEUTICS AB
  Company Number: US-Calliditas-2025CAL01086

PATIENT
  Age: 55 Year
  Sex: Male

DRUGS (16)
  1. TARPEYO [Suspect]
     Active Substance: BUDESONIDE
     Indication: IgA nephropathy
     Route: 048
     Dates: start: 20241031, end: 202503
  2. TARPEYO [Suspect]
     Active Substance: BUDESONIDE
     Indication: IgA nephropathy
     Route: 048
     Dates: start: 202503, end: 20250401
  3. CYCLOBENZAPRINE [Concomitant]
     Active Substance: CYCLOBENZAPRINE
  4. OXYCODONE [Concomitant]
     Active Substance: OXYCODONE
  5. ATORVASTATIN [Concomitant]
     Active Substance: ATORVASTATIN
  6. COREG [Concomitant]
     Active Substance: CARVEDILOL
  7. CHLORTHALIDONE [Concomitant]
     Active Substance: CHLORTHALIDONE
  8. CLONIDINE [Concomitant]
     Active Substance: CLONIDINE
  9. PLAVIX [Concomitant]
     Active Substance: CLOPIDOGREL BISULFATE
  10. VITAMIN D2 [Concomitant]
     Active Substance: ERGOCALCIFEROL
  11. KERENDIA [Concomitant]
     Active Substance: FINERENONE
  12. HYDRALAZINE [Concomitant]
     Active Substance: HYDRALAZINE HYDROCHLORIDE
  13. INDOMETHACIN [Concomitant]
     Active Substance: INDOMETHACIN
  14. LOSARTAN [Concomitant]
     Active Substance: LOSARTAN
  15. PROTONIX [Concomitant]
     Active Substance: PANTOPRAZOLE SODIUM
  16. LOKELMA [SODIUM ZIRCONIUM CYCLOSILICATE] [Concomitant]

REACTIONS (3)
  - Muscular weakness [Not Recovered/Not Resolved]
  - Pain [Not Recovered/Not Resolved]
  - Rash [Not Recovered/Not Resolved]
